FAERS Safety Report 11184345 (Version 1)
Quarter: 2015Q2

REPORT INFORMATION
  Report Type: Spontaneous
  Country: IT (occurrence: None)
  Receive Date: 20150610
  Receipt Date: 20150610
  Transmission Date: 20150821
  Serious: Yes (Other)
  Sender: FDA-Public Use
  Company Number: FK201502654

PATIENT
  Age: 12 Year
  Sex: Male

DRUGS (7)
  1. CYCLOPHOSPHAMIDE (MANUFACTURER UNKNOWN) (CYCLOPHOSPHAMIDE) (CYCLOPHOSPHAMIDE) [Suspect]
     Active Substance: CYCLOPHOSPHAMIDE
     Indication: GLIOMA
     Dosage: 1 COURSE
  2. THIOTEPA. [Suspect]
     Active Substance: THIOTEPA
     Indication: GLIOMA
     Dosage: 1 COURSE
  3. METHOTREXATE (MANUFACTURER UNKNOWN) (METHOTREXATE) (METHOTREXATE) [Suspect]
     Active Substance: METHOTREXATE
     Indication: GLIOMA
     Dosage: 1 COURSE
  4. ETOPOSIDE (MANUFACTURER UNKNOWN) (ETOPOSIDE) (ETOPOSIDE) [Suspect]
     Active Substance: ETOPOSIDE
     Indication: GLIOMA
     Dosage: 1 COURSE
  5. LOMUSTINE (LOMUSTINE) (LOMUSTINE) [Suspect]
     Active Substance: LOMUSTINE
     Indication: GLIOMA
  6. CARBOPLATIN (MANUFACTURER UNKNOWN) (CARBOPLATIN) (CARBOPLATIN) [Suspect]
     Active Substance: CARBOPLATIN
     Indication: GLIOMA
     Dosage: 1 COURSE
  7. VINCRISTINE (VINCRISTINE) (VINCRISTINE) [Suspect]
     Active Substance: VINCRISTINE
     Indication: GLIOMA

REACTIONS (5)
  - Haematotoxicity [None]
  - Mucosal inflammation [None]
  - Wernicke^s encephalopathy [None]
  - Vitamin B1 decreased [None]
  - Decreased appetite [None]
